FAERS Safety Report 5783185-4 (Version None)
Quarter: 2008Q2

REPORT INFORMATION
  Report Type: 
  Country: None (occurrence: None)
  Receive Date: 20080619
  Receipt Date: 20080619
  Transmission Date: 20081010
  Serious: No
  Sender: FDA-Public Use
  Company Number: None

PATIENT
  Age: 23 Year
  Sex: Female
  Weight: 55.7924 kg

DRUGS (1)
  1. KENALOG [Suspect]
     Indication: MULTIPLE ALLERGIES
     Dosage: ONE DOSE IM
     Route: 030
     Dates: start: 20080414, end: 20080414

REACTIONS (2)
  - CELL DEATH [None]
  - SOFT TISSUE DISORDER [None]
